FAERS Safety Report 4679820-4 (Version None)
Quarter: 2005Q2

REPORT INFORMATION
  Report Type: 
  Country: None (occurrence: None)
  Receive Date: 20050531
  Receipt Date: 20050517
  Transmission Date: 20051028
  Serious: Yes (Death)
  Sender: FDA-Public Use
  Company Number: B0381633A

PATIENT
  Age: 21 Year
  Sex: Female
  Weight: 62.8685 kg

DRUGS (4)
  1. LAMICTAL [Suspect]
     Indication: TEMPORAL LOBE EPILEPSY
     Dosage: SEE TEXT
  2. PAXIL [Suspect]
  3. CARBAMAZEPINE [Suspect]
  4. THIORIDAZINE HCL [Suspect]

REACTIONS (4)
  - COMPLETED SUICIDE [None]
  - DRUG TOXICITY [None]
  - MULTIPLE DRUG OVERDOSE [None]
  - NERVOUS SYSTEM DISORDER [None]
